FAERS Safety Report 5486770-2 (Version None)
Quarter: 2007Q4

REPORT INFORMATION
  Report Type: 
  Country: None (occurrence: None)
  Receive Date: 20071016
  Receipt Date: 20071011
  Transmission Date: 20080405
  Serious: Yes (Other)
  Sender: FDA-Public Use
  Company Number: B0487623A

PATIENT
  Age: 55 Year
  Sex: Female
  Weight: 40 kg

DRUGS (6)
  1. VALTREX [Suspect]
     Indication: DRUG USE FOR UNKNOWN INDICATION
     Route: 048
     Dates: start: 20070912, end: 20070914
  2. FUROSEMIDE [Concomitant]
  3. FAMOTIDINE [Concomitant]
  4. ALDOMET [Concomitant]
     Dosage: 250MG PER DAY
     Route: 048
  5. TOWARAT L [Concomitant]
     Dosage: 60MG PER DAY
     Route: 048
  6. CALTAN [Concomitant]
     Dosage: 1500MG PER DAY
     Route: 048

REACTIONS (4)
  - AFFECT LABILITY [None]
  - DELUSION [None]
  - ENCEPHALOPATHY [None]
  - HALLUCINATION [None]
